FAERS Safety Report 5889499-1 (Version None)
Quarter: 2008Q3

REPORT INFORMATION
  Report Type: 
  Country: None (occurrence: None)
  Receive Date: 20080919
  Receipt Date: 20080905
  Transmission Date: 20090109
  Serious: Yes (Hospitalization)
  Sender: FDA-Public Use
  Company Number: FR-ELI_LILLY_AND_COMPANY-FR200807005494

PATIENT
  Age: 71 Year
  Sex: Female
  Weight: 48 kg

DRUGS (5)
  1. FORTEO [Suspect]
     Indication: OSTEOPOROSIS
     Dosage: 20 UG, UNKNOWN
     Route: 058
     Dates: start: 20080301
  2. SOLUPRED [Concomitant]
     Dosage: 10 MG, DAILY (1/D)
     Route: 048
  3. IRBESARTAN [Concomitant]
     Dosage: 150 MG, DAILY (1/D)
     Route: 048
  4. LEVOTHYROX [Concomitant]
     Dosage: 75 UG, DAILY (1/D)
     Route: 048
  5. SKENAN [Concomitant]
     Indication: BONE PAIN
     Dosage: 30 MG, 2/D
     Route: 048
     Dates: start: 20080401

REACTIONS (2)
  - BILE DUCT STONE [None]
  - CHOLELITHIASIS [None]
